FAERS Safety Report 10272111 (Version 4)
Quarter: 2014Q3

REPORT INFORMATION
  Report Type: Spontaneous
  Country: PL (occurrence: PL)
  Receive Date: 20140702
  Receipt Date: 20140804
  Transmission Date: 20150326
  Serious: Yes (Death, Life-Threatening)
  Sender: FDA-Public Use
  Company Number: PL-ROCHE-1427859

PATIENT
  Age: 1 Year
  Sex: Female
  Weight: 10 kg

DRUGS (17)
  1. ENCORTON [Concomitant]
     Active Substance: PREDNISONE
     Indication: HEPATITIS NEONATAL
     Dosage: 15+5MG
     Route: 048
     Dates: start: 20140411
  2. ACESAN [Concomitant]
     Indication: HEPATITIS NEONATAL
     Route: 048
  3. IMURAN [Concomitant]
     Active Substance: AZATHIOPRINE
     Indication: HEPATITIS NEONATAL
     Dosage: 12.5 + 6.25 MG
     Route: 048
     Dates: start: 20140411, end: 20140626
  4. URSOFALK [Concomitant]
     Active Substance: URSODIOL
     Indication: AUTOIMMUNE HAEMOLYTIC ANAEMIA
  5. MABTHERA [Suspect]
     Active Substance: RITUXIMAB
     Indication: HEPATITIS NEONATAL
     Dosage: 4 DOSES TAKEN (FULL THERAPY)
     Route: 042
     Dates: start: 20140429, end: 20140520
  6. URSOFALK [Concomitant]
     Active Substance: URSODIOL
     Route: 065
     Dates: start: 201403
  7. VITAMIN E [Concomitant]
     Active Substance: .ALPHA.-TOCOPHEROL
     Dosage: 3 DROPS
     Route: 065
     Dates: start: 201403
  8. ENCORTON [Concomitant]
     Active Substance: PREDNISONE
     Indication: AUTOIMMUNE HAEMOLYTIC ANAEMIA
  9. URSOFALK [Concomitant]
     Active Substance: URSODIOL
     Indication: HEPATITIS NEONATAL
     Route: 048
  10. ACESAN [Concomitant]
     Indication: AUTOIMMUNE HAEMOLYTIC ANAEMIA
  11. FOLIC ACID. [Concomitant]
     Active Substance: FOLIC ACID
     Dosage: 1 X 5 MG
     Route: 065
  12. IMURAN [Concomitant]
     Active Substance: AZATHIOPRINE
     Indication: AUTOIMMUNE HAEMOLYTIC ANAEMIA
  13. VITAMIN A [Concomitant]
     Active Substance: VITAMIN A
     Dosage: 2 DROPS
     Route: 065
     Dates: start: 201403
  14. MABTHERA [Suspect]
     Active Substance: RITUXIMAB
     Indication: AUTOIMMUNE HAEMOLYTIC ANAEMIA
  15. ACESAN [Concomitant]
     Route: 065
     Dates: start: 201404
  16. HELICID [Concomitant]
     Route: 065
     Dates: start: 201404
  17. VITACON [Concomitant]
     Route: 065
     Dates: start: 201403

REACTIONS (2)
  - Respiratory failure [Fatal]
  - Pulmonary fibrosis [Not Recovered/Not Resolved]

NARRATIVE: CASE EVENT DATE: 20140624
